FAERS Safety Report 9649350 (Version 2)
Quarter: 2014Q1

REPORT INFORMATION
  Report Type: Report from Study
  Country: FR (occurrence: FR)
  Receive Date: 20131028
  Receipt Date: 20140203
  Transmission Date: 20141002
  Serious: Yes (Hospitalization)
  Sender: FDA-Public Use
  Company Number: FR-SA-2013SA106461

PATIENT
  Age: 50 Year
  Sex: Male

DRUGS (7)
  1. CAMPATH [Suspect]
     Indication: MYCOSIS FUNGOIDES
     Dosage: ON WEEK 2,5 AND 7 PATIENT RECIEVED ONLY 2 INJECTIONS INSTEAD OF 3.
     Route: 058
     Dates: start: 201305
  2. CAMPATH [Suspect]
     Indication: MYCOSIS FUNGOIDES
     Dosage: ON WEEK 2, 5 AND 7, ONLY 2 INJECTIONS INSTEAD OF THREE WERE ADMINISTERED
     Route: 058
     Dates: end: 20130703
  3. ATARAX [Concomitant]
     Route: 065
  4. BACTRIM [Concomitant]
     Route: 065
  5. CALCI-D3 [Concomitant]
     Route: 065
  6. ZELITREX [Concomitant]
     Route: 065
  7. TRANDATE [Concomitant]
     Route: 065

REACTIONS (3)
  - Skin infection [Recovered/Resolved]
  - Urinary tract infection [Recovered/Resolved]
  - Drug ineffective [Unknown]
